FAERS Safety Report 11062714 (Version 3)
Quarter: 2015Q3

REPORT INFORMATION
  Report Type: Spontaneous
  Country: DE (occurrence: DE)
  Receive Date: 20150424
  Receipt Date: 20150814
  Transmission Date: 20151125
  Serious: Yes (Hospitalization, Other)
  Sender: FDA-Public Use
  Company Number: DE-PFIZER INC-2015136444

PATIENT
  Age: 69 Year
  Sex: Female

DRUGS (16)
  1. NACL [Concomitant]
     Active Substance: SODIUM CHLORIDE
     Dosage: UNK
     Dates: start: 20090426
  2. ZYPREXA [Interacting]
     Active Substance: OLANZAPINE
     Dosage: UNK
     Route: 065
  3. ERGENYL CHRONO [Concomitant]
     Active Substance: VALPROIC ACID
     Dosage: 300 MG, 1X/DAY
     Dates: start: 20090426, end: 20090505
  4. ORFIRIL [Interacting]
     Active Substance: VALPROIC ACID
     Dosage: 600 MG, 1X/DAY
     Route: 065
  5. TREVILOR RETARD [Suspect]
     Active Substance: VENLAFAXINE HYDROCHLORIDE
     Dosage: UNK
  6. ZYPREXA [Interacting]
     Active Substance: OLANZAPINE
     Dosage: 5 MG, DAILY
     Route: 065
  7. ERGENYL CHRONO [Concomitant]
     Active Substance: VALPROIC ACID
     Dosage: 600 MG, 1X/DAY
     Dates: start: 20090507
  8. RAMIPRIL. [Interacting]
     Active Substance: RAMIPRIL
     Dosage: 2.5 MG, 1X/DAY
     Route: 065
     Dates: start: 20090428, end: 20090430
  9. RAMIPRIL. [Interacting]
     Active Substance: RAMIPRIL
     Dosage: 5 MG, 1X/DAY
     Route: 065
     Dates: start: 20090501
  10. BISOHEXAL [Concomitant]
     Active Substance: BISOPROLOL FUMARATE
     Dosage: UNK
  11. ERGENYL CHRONO [Concomitant]
     Active Substance: VALPROIC ACID
     Dosage: 450 MG, 1X/DAY
     Dates: start: 20090506, end: 20090506
  12. GLUCOSE [Concomitant]
     Active Substance: DEXTROSE
     Dosage: UNK
     Dates: start: 20090426
  13. SIMVASTATIN-MEPHA [Concomitant]
     Dosage: 40 DF, DAILY
  14. L-THYROXIN [Concomitant]
     Active Substance: LEVOTHYROXINE SODIUM
     Dosage: 75 MG, 1X/DAY
  15. RINGER [Concomitant]
     Dosage: UNK
     Dates: start: 20090426
  16. DIPIPERON [Concomitant]
     Active Substance: PIPAMPERONE
     Dosage: 30 MG, 1X/DAY

REACTIONS (2)
  - Drug interaction [Unknown]
  - Hyponatraemia [Recovered/Resolved]

NARRATIVE: CASE EVENT DATE: 20090426
